FAERS Safety Report 12049823 (Version 1)
Quarter: 2016Q1

REPORT INFORMATION
  Report Type: Spontaneous
  Country: None (occurrence: None)
  Receive Date: 20160208
  Receipt Date: 20160208
  Transmission Date: 20160526
  Serious: Yes (Other)
  Sender: FDA-Public Use
  Company Number: None

PATIENT
  Age: 54 Year
  Sex: Male
  Weight: 65.77 kg

DRUGS (3)
  1. ACETAMINOPHINE [Concomitant]
  2. METAXALONE 800MG U.S. HEALTHWORKS [Suspect]
     Active Substance: METAXALONE
     Indication: LIGAMENT SPRAIN
     Dosage: 1-800MG/30 AT BEDTIME TAKEN BY MOUTH
     Route: 048
     Dates: start: 20160205, end: 20160206
  3. ETODOLAC ER [Concomitant]
     Active Substance: ETODOLAC

REACTIONS (6)
  - Disorientation [None]
  - Pruritus [None]
  - Palpitations [None]
  - Dizziness [None]
  - Dyspnoea [None]
  - Dysstasia [None]

NARRATIVE: CASE EVENT DATE: 20160206
